FAERS Safety Report 16329904 (Version 2)
Quarter: 2019Q2

REPORT INFORMATION
  Report Type: Spontaneous
  Country: AR (occurrence: AR)
  Receive Date: 20190520
  Receipt Date: 20190618
  Transmission Date: 20190711
  Serious: Yes (Other)
  Sender: FDA-Public Use
  Company Number: AR-GLAXOSMITHKLINE-AR2019GSK011524

PATIENT
  Age: 68 Year
  Sex: Female

DRUGS (1)
  1. NUCALA [Suspect]
     Active Substance: MEPOLIZUMAB
     Indication: ASTHMA
     Dosage: UNK
     Dates: start: 20181218

REACTIONS (10)
  - Decreased appetite [Unknown]
  - Asthenia [Unknown]
  - Back pain [Unknown]
  - Influenza [Unknown]
  - Asthmatic crisis [Recovered/Resolved]
  - Product administration error [Unknown]
  - Therapy cessation [Unknown]
  - Somnolence [Unknown]
  - Vomiting [Unknown]
  - Arthralgia [Recovered/Resolved]

NARRATIVE: CASE EVENT DATE: 20190111
